FAERS Safety Report 7420592-8 (Version None)
Quarter: 2011Q2

REPORT INFORMATION
  Report Type: 
  Country: None (occurrence: None)
  Receive Date: 20110418
  Receipt Date: 20110405
  Transmission Date: 20111010
  Serious: Yes (Hospitalization)
  Sender: FDA-Public Use
  Company Number: JP-ASTRAZENECA-2011SE20278

PATIENT
  Age: 62 Year
  Sex: Female
  Weight: 42 kg

DRUGS (5)
  1. CETIRIZINE HYDROCHLORIDE [Concomitant]
     Indication: RHINITIS ALLERGIC
     Dosage: DOSE UNKNOWN
     Route: 048
  2. UFT [Suspect]
     Indication: BREAST CANCER
     Route: 048
     Dates: start: 20110301, end: 20110328
  3. MEQUITAZINE [Concomitant]
     Indication: RHINITIS ALLERGIC
     Dosage: DOSE UNKNOWN
     Route: 048
  4. EPHEDRA TEAS [Concomitant]
     Indication: RHINITIS ALLERGIC
     Dosage: DOSE UNKNOWN
     Route: 048
  5. ARIMIDEX [Suspect]
     Indication: BREAST CANCER
     Route: 048
     Dates: start: 20110301, end: 20110401

REACTIONS (1)
  - LIVER DISORDER [None]
